FAERS Safety Report 6723460-X (Version None)
Quarter: 2010Q2

REPORT INFORMATION
  Report Type: 
  Country: None (occurrence: None)
  Receive Date: 20100513
  Receipt Date: 20100506
  Transmission Date: 20101027
  Serious: Yes (Hospitalization)
  Sender: FDA-Public Use
  Company Number: US-RB-008689-10

PATIENT
  Sex: Female

DRUGS (3)
  1. SUBUTEX [Suspect]
     Route: 060
     Dates: start: 20090201, end: 20090501
  2. SUBUTEX [Suspect]
     Route: 060
     Dates: start: 20090501
  3. SUBOXONE [Suspect]
     Route: 060
     Dates: start: 20060101, end: 20090201

REACTIONS (3)
  - BENIGN NEOPLASM OF CERVIX UTERI [None]
  - DRUG EXPOSURE DURING PREGNANCY [None]
  - PRE-ECLAMPSIA [None]
